FAERS Safety Report 19153883 (Version 1)
Quarter: 2021Q2

REPORT INFORMATION
  Report Type: Spontaneous
  Country: GB (occurrence: GB)
  Receive Date: 20210419
  Receipt Date: 20210419
  Transmission Date: 20210717
  Serious: Yes (Other)
  Sender: FDA-Public Use
  Company Number: GB-TEVA-2021-GB-1901564

PATIENT
  Age: 22 Year
  Sex: Female

DRUGS (2)
  1. PROPRANOLOL [Suspect]
     Active Substance: PROPRANOLOL HYDROCHLORIDE
     Indication: ANXIETY
     Dosage: 40MG
     Route: 048
     Dates: start: 20190925, end: 20210404
  2. ESCITALOPRAM [Concomitant]
     Active Substance: ESCITALOPRAM OXALATE
     Indication: ILL-DEFINED DISORDER

REACTIONS (7)
  - Somnolence [Not Recovered/Not Resolved]
  - Peripheral coldness [Not Recovered/Not Resolved]
  - Hyperhidrosis [Recovering/Resolving]
  - Hypersomnia [Not Recovered/Not Resolved]
  - Nightmare [Unknown]
  - Weight increased [Not Recovered/Not Resolved]
  - Depression suicidal [Recovering/Resolving]
